FAERS Safety Report 20211508 (Version 1)
Quarter: 2021Q4

REPORT INFORMATION
  Report Type: Spontaneous
  Country: US (occurrence: None)
  Receive Date: 20211220
  Receipt Date: 20211220
  Transmission Date: 20220304
  Serious: Yes (Other)
  Sender: FDA-Public Use
  Company Number: None

PATIENT
  Age: 64 Year
  Sex: Male
  Weight: 76.32 kg

DRUGS (4)
  1. RISPERIDONE [Suspect]
     Active Substance: RISPERIDONE
     Dosage: FREQUENCY : TWICE A DAY;?
     Route: 048
     Dates: start: 20211025, end: 20211122
  2. QUETIAPINE [Concomitant]
     Active Substance: QUETIAPINE
  3. DOXAZOSIN [Concomitant]
     Active Substance: DOXAZOSIN MESYLATE
  4. LEVETIRACETAM [Concomitant]
     Active Substance: LEVETIRACETAM

REACTIONS (3)
  - Eating disorder [None]
  - Cough [None]
  - Dysphagia [None]

NARRATIVE: CASE EVENT DATE: 20211118
